FAERS Safety Report 4982311-4 (Version None)
Quarter: 2006Q2

REPORT INFORMATION
  Report Type: 
  Country: None (occurrence: None)
  Receive Date: 20060425
  Receipt Date: 20050721
  Transmission Date: 20061013
  Serious: Yes (Hospitalization)
  Sender: FDA-Public Use
  Company Number: DE-ROCHE-411630

PATIENT
  Age: 50 Year
  Sex: Female
  Weight: 52 kg

DRUGS (4)
  1. PEG-INTERFERON ALFA 2A (RO 25-8310) [Suspect]
     Route: 058
     Dates: start: 20040709, end: 20040809
  2. PEG-INTERFERON ALFA 2A (RO 25-8310) [Suspect]
     Route: 058
     Dates: start: 20040809, end: 20040825
  3. PEG-INTERFERON ALFA 2A (RO 25-8310) [Suspect]
     Route: 058
     Dates: start: 20040825, end: 20050616
  4. RIBAVIRIN [Concomitant]
     Route: 048
     Dates: start: 20040709, end: 20050623

REACTIONS (14)
  - ARTHRALGIA [None]
  - CARDIOMEGALY [None]
  - CHEST PAIN [None]
  - DEHYDRATION [None]
  - DYSPNOEA EXERTIONAL [None]
  - ERYTHEMA [None]
  - HEART RATE INCREASED [None]
  - PERICARDIAL EFFUSION [None]
  - PHYSICAL EXAMINATION ABNORMAL [None]
  - PLEURAL HAEMORRHAGE [None]
  - POLYSEROSITIS [None]
  - PYREXIA [None]
  - RESPIRATORY DISORDER [None]
  - SPLENOMEGALY [None]
